FAERS Safety Report 9099374 (Version 3)
Quarter: 2013Q3

REPORT INFORMATION
  Report Type: Report from Study
  Country: CA (occurrence: CA)
  Receive Date: 20130214
  Receipt Date: 20130708
  Transmission Date: 20140515
  Serious: Yes (Other)
  Sender: FDA-Public Use
  Company Number: CA-JNJFOC-20130203769

PATIENT
  Age: 41 Year
  Sex: Female
  Weight: 95.26 kg

DRUGS (2)
  1. STELARA [Suspect]
     Indication: HIDRADENITIS
     Route: 058
     Dates: start: 20121213
  2. STELARA [Suspect]
     Indication: RHEUMATOID ARTHRITIS
     Route: 058
     Dates: start: 20121213

REACTIONS (2)
  - Nephrolithiasis [Unknown]
  - Off label use [Unknown]
